FAERS Safety Report 23219307 (Version 3)
Quarter: 2024Q3

REPORT INFORMATION
  Report Type: Report from Study
  Country: CA (occurrence: CA)
  Receive Date: 20231122
  Receipt Date: 20240823
  Transmission Date: 20241016
  Serious: Yes (Other)
  Sender: BAUSCH AND LOMB
  Company Number: CA-BAUSCH-BL-2023-009965

PATIENT
  Age: 49 Year
  Sex: Male

DRUGS (4)
  1. SILIQ [Suspect]
     Active Substance: BRODALUMAB
     Indication: Psoriasis
     Dosage: 210/1.5 ML, WEEKLY
     Route: 058
     Dates: start: 20210727, end: 202108
  2. SILIQ [Suspect]
     Active Substance: BRODALUMAB
     Dosage: 210/1.5 ML, Q2 WEEKS
     Route: 058
  3. SILIQ [Suspect]
     Active Substance: BRODALUMAB
     Dosage: 210/1.5 ML, Q3 WEEKS
     Route: 058
     Dates: end: 2023
  4. SILIQ [Suspect]
     Active Substance: BRODALUMAB
     Dosage: 210/1.5 ML, MONTHLY (OFF-LABEL)
     Route: 058
     Dates: start: 2023

REACTIONS (5)
  - Shoulder operation [Recovering/Resolving]
  - Psoriasis [Not Recovered/Not Resolved]
  - Disease recurrence [Not Recovered/Not Resolved]
  - Intentional product use issue [Unknown]
  - Insurance issue [Unknown]

NARRATIVE: CASE EVENT DATE: 20230101
